FAERS Safety Report 24032671 (Version 2)
Quarter: 2024Q3

REPORT INFORMATION
  Report Type: Spontaneous
  Country: US (occurrence: US)
  Receive Date: 20240701
  Receipt Date: 20240711
  Transmission Date: 20241017
  Serious: Yes (Other)
  Sender: SANOFI AVENTIS
  Company Number: US-SANOFI-02100654

PATIENT
  Age: 81 Year
  Sex: Female

DRUGS (1)
  1. LANTUS [Suspect]
     Active Substance: INSULIN GLARGINE
     Indication: Type 2 diabetes mellitus
     Dosage: 62 UNITS AM + 40 UNITS PM, BID

REACTIONS (7)
  - Cerebrovascular accident [Unknown]
  - Asthenia [Unknown]
  - Skin induration [Unknown]
  - Pain of skin [Unknown]
  - Blood glucose decreased [Unknown]
  - Off label use [Unknown]
  - Expired product administered [Unknown]
